FAERS Safety Report 8776554 (Version 3)
Quarter: 2012Q4

REPORT INFORMATION
  Report Type: 
  Country: FR (occurrence: FR)
  Receive Date: 20120910
  Receipt Date: 20120914
  Transmission Date: 20130627
  Serious: Yes (Other)
  Sender: FDA-Public Use
  Company Number: PHHY2012FR075231

PATIENT
  Sex: Male
  Weight: 78 kg

DRUGS (3)
  1. ZOMETA [Suspect]
     Indication: METASTASES TO BONE
     Dosage: every 4 weeks
     Route: 042
     Dates: start: 200910, end: 201202
  2. SUTENT [Suspect]
     Indication: METASTASES TO BONE
     Dosage: 50 mg, UNK
     Dates: start: 200910, end: 201206
  3. SUTENT [Suspect]
     Dosage: 50 mg, UNK
     Dates: end: 201205

REACTIONS (8)
  - Osteonecrosis of jaw [Not Recovered/Not Resolved]
  - Exposed bone in jaw [Not Recovered/Not Resolved]
  - Pain [Not Recovered/Not Resolved]
  - Oral disorder [Not Recovered/Not Resolved]
  - Oral mucosal erythema [Not Recovered/Not Resolved]
  - Swelling [Not Recovered/Not Resolved]
  - Lymph node pain [Not Recovered/Not Resolved]
  - Lymphadenopathy [Not Recovered/Not Resolved]
